FAERS Safety Report 16198886 (Version 1)
Quarter: 2019Q2

REPORT INFORMATION
  Report Type: Spontaneous
  Country: DE (occurrence: DE)
  Receive Date: 20190415
  Receipt Date: 20190415
  Transmission Date: 20190711
  Serious: Yes (Hospitalization)
  Sender: FDA-Public Use
  Company Number: DE-MYLANLABS-2019M1035754

PATIENT
  Age: 74 Year
  Sex: Female

DRUGS (1)
  1. FLUOROURACIL. [Suspect]
     Active Substance: FLUOROURACIL
     Indication: PANCREATIC CARCINOMA METASTATIC
     Dosage: CONTINUOUS INFUSION
     Route: 050

REACTIONS (2)
  - Pancreatic pseudocyst [Recovered/Resolved]
  - Splenic cyst [Recovered/Resolved]
